FAERS Safety Report 5683243-9 (Version None)
Quarter: 2008Q1

REPORT INFORMATION
  Report Type: 
  Country: None (occurrence: None)
  Receive Date: 20080327
  Receipt Date: 20080319
  Transmission Date: 20080703
  Serious: Yes (Hospitalization, Other)
  Sender: FDA-Public Use
  Company Number: JP-PFIZER INC-2008017134

PATIENT
  Sex: Female
  Weight: 44.2 kg

DRUGS (20)
  1. SILDENAFIL (PAH) [Suspect]
     Indication: PULMONARY HYPERTENSION
  2. FLOLAN [Suspect]
     Indication: PULMONARY HYPERTENSION
     Dosage: DAILY DOSE:6MG
     Route: 042
  3. TRACLEER [Concomitant]
     Route: 048
  4. WARFARIN SODIUM [Concomitant]
     Route: 048
  5. FAMOTIDINE [Concomitant]
     Route: 048
  6. IPD [Concomitant]
     Route: 048
  7. LASIX [Concomitant]
     Route: 048
  8. ALDACTONE [Concomitant]
     Route: 048
  9. FLUITRAN [Concomitant]
     Route: 048
  10. SLOW-K [Concomitant]
     Route: 048
  11. ALLELOCK [Concomitant]
     Route: 048
  12. COLDRIN [Concomitant]
     Route: 048
  13. LOXONIN [Concomitant]
     Route: 048
  14. MILRILA [Concomitant]
     Route: 042
  15. GLUCOSE [Concomitant]
     Route: 042
  16. HANP [Concomitant]
     Route: 042
     Dates: start: 20080110, end: 20080204
  17. WATER FOR INJECTION [Concomitant]
     Route: 042
     Dates: start: 20080110, end: 20080204
  18. FLONASE [Concomitant]
     Dates: start: 20070606, end: 20070901
  19. PRIVINA [Concomitant]
     Dates: start: 20070905, end: 20071101
  20. LOSARTAN POTASSIUM [Concomitant]
     Route: 048
     Dates: start: 20020601, end: 20070823

REACTIONS (10)
  - EOSINOPHIL COUNT INCREASED [None]
  - EOSINOPHILIC PNEUMONIA [None]
  - EYE SWELLING [None]
  - INTERSTITIAL LUNG DISEASE [None]
  - NASAL CONGESTION [None]
  - PULMONARY CONGESTION [None]
  - PULMONARY HAEMORRHAGE [None]
  - RHINORRHOEA [None]
  - RIGHT VENTRICULAR FAILURE [None]
  - SWELLING FACE [None]
